FAERS Safety Report 7971786-4 (Version None)
Quarter: 2011Q4

REPORT INFORMATION
  Report Type: 
  Country: None (occurrence: None)
  Receive Date: 20111212
  Receipt Date: 20111205
  Transmission Date: 20120403
  Serious: Yes (Other)
  Sender: FDA-Public Use
  Company Number: US-SANOFI-AVENTIS-2011SA079948

PATIENT
  Age: 67 Year
  Sex: Female

DRUGS (2)
  1. LANTUS [Suspect]
     Dosage: DOSE:55 UNIT(S)
     Route: 058
     Dates: start: 20110901
  2. SOLOSTAR [Suspect]
     Dates: start: 20110901

REACTIONS (1)
  - MACULAR DEGENERATION [None]
